FAERS Safety Report 9195478 (Version 2)
Quarter: 2013Q2

REPORT INFORMATION
  Report Type: Spontaneous
  Country: US (occurrence: US)
  Receive Date: 20130328
  Receipt Date: 20130422
  Transmission Date: 20140414
  Serious: Yes (Hospitalization, Other)
  Sender: FDA-Public Use
  Company Number: US-BIOGENIDEC-2013BI027144

PATIENT
  Sex: Female

DRUGS (2)
  1. AVONEX [Suspect]
     Indication: MULTIPLE SCLEROSIS
     Route: 030
     Dates: start: 20030303, end: 20041004
  2. AVONEX [Suspect]
     Indication: MULTIPLE SCLEROSIS
     Route: 030
     Dates: start: 20081119, end: 20090801

REACTIONS (11)
  - Pyrexia [Recovered/Resolved]
  - Staphylococcal infection [Unknown]
  - Abdominal operation [Recovered/Resolved]
  - Hypoaesthesia [Not Recovered/Not Resolved]
  - Kidney infection [Recovered/Resolved]
  - Food allergy [Not Recovered/Not Resolved]
  - Rubber sensitivity [Not Recovered/Not Resolved]
  - Infectious mononucleosis [Unknown]
  - Local swelling [Recovered/Resolved]
  - Back pain [Unknown]
  - Multiple sclerosis relapse [Not Recovered/Not Resolved]
